FAERS Safety Report 17473347 (Version 1)
Quarter: 2020Q1

REPORT INFORMATION
  Report Type: Report from Study
  Country: CO (occurrence: CO)
  Receive Date: 20200228
  Receipt Date: 20200228
  Transmission Date: 20200409
  Serious: Yes (Disabling)
  Sender: FDA-Public Use
  Company Number: CO-JNJFOC-20190538632

PATIENT
  Age: 41 Year

DRUGS (1)
  1. STELARA [Suspect]
     Active Substance: USTEKINUMAB
     Indication: PSORIASIS
     Route: 058
     Dates: start: 20141029, end: 20151129

REACTIONS (8)
  - Psoriasis [Unknown]
  - Off label use [Unknown]
  - Chikungunya virus infection [Unknown]
  - Product use issue [Unknown]
  - Arthralgia [Unknown]
  - Inappropriate schedule of product administration [Unknown]
  - Product dose omission [Unknown]
  - Ecchymosis [Unknown]

NARRATIVE: CASE EVENT DATE: 2015
